FAERS Safety Report 12145532 (Version 2)
Quarter: 2016Q2

REPORT INFORMATION
  Report Type: Spontaneous
  Country: US (occurrence: US)
  Receive Date: 20160304
  Receipt Date: 20160525
  Transmission Date: 20160815
  Serious: Yes (Hospitalization, Other)
  Sender: FDA-Public Use
  Company Number: US-PFIZER INC-2016136079

PATIENT
  Age: 61 Year
  Sex: Male

DRUGS (2)
  1. TESTOSTERONE CYPIONATE. [Suspect]
     Active Substance: TESTOSTERONE CYPIONATE
     Indication: HORMONE REPLACEMENT THERAPY
     Dosage: UNK, 200 MG/ML IN OIL
     Dates: start: 2010, end: 2013
  2. DEPO-TESTOSTERONE [Suspect]
     Active Substance: TESTOSTERONE CYPIONATE
     Indication: HORMONE REPLACEMENT THERAPY
     Dosage: UNK
     Dates: start: 20110101, end: 20131001

REACTIONS (6)
  - Heart valve incompetence [Unknown]
  - Heart rate irregular [Unknown]
  - Bone disorder [Unknown]
  - Depression [Unknown]
  - Myocardial infarction [Unknown]
  - Cardiac disorder [Unknown]

NARRATIVE: CASE EVENT DATE: 20130507
